FAERS Safety Report 7779525-7 (Version None)
Quarter: 2011Q3

REPORT INFORMATION
  Report Type: 
  Country: None (occurrence: None)
  Receive Date: 20110927
  Receipt Date: 20110913
  Transmission Date: 20111222
  Serious: Yes (Other)
  Sender: FDA-Public Use
  Company Number: GB-RANBAXY-2011R1-47911

PATIENT

DRUGS (8)
  1. BENDROFLUMETHIAZIDE [Concomitant]
     Indication: HYPERTENSION
     Dosage: 2.5 MG, UNK
     Route: 048
     Dates: start: 20040101
  2. PREMPAK [Concomitant]
     Indication: MENOPAUSE
     Dosage: UNK
     Route: 048
     Dates: start: 20110101
  3. CHLORAMPHENICOL [Suspect]
     Indication: OCULAR HYPERAEMIA
     Dosage: UNK, 2-4 HOURLY
     Route: 047
     Dates: start: 20110706
  4. CHLORAMPHENICOL [Suspect]
     Indication: UVEITIS
  5. PREMPAK [Concomitant]
     Indication: HYSTERECTOMY
  6. NAPROXEN [Suspect]
     Indication: JOINT INJURY
     Dosage: 500 MG, BID
     Route: 048
     Dates: start: 20110619, end: 20110630
  7. ENALAPRIL MALEATE [Concomitant]
     Indication: HYPERTENSION
     Dosage: 5 MG, UNK
     Route: 048
     Dates: start: 20070101
  8. HYPROMELLOSE [Concomitant]
     Indication: UVEITIS
     Dosage: UNK
     Route: 047
     Dates: start: 20110101

REACTIONS (4)
  - ANAEMIA [None]
  - MALAISE [None]
  - PANCYTOPENIA [None]
  - DIZZINESS [None]
